FAERS Safety Report 8581839-8 (Version None)
Quarter: 2012Q3

REPORT INFORMATION
  Report Type: 
  Country: None (occurrence: None)
  Receive Date: 20120809
  Receipt Date: 20120731
  Transmission Date: 20120928
  Serious: Yes (Other)
  Sender: FDA-Public Use
  Company Number: US-ASTRAZENECA-2011SE77049

PATIENT
  Age: 77 Year
  Sex: Female
  Weight: 49 kg

DRUGS (13)
  1. 17 TO 20 MEDICATION [Concomitant]
  2. CELEBREX [Concomitant]
  3. PREMPRO [Concomitant]
  4. NEXIUM [Suspect]
     Indication: GASTROOESOPHAGEAL REFLUX DISEASE
     Route: 048
  5. CO24 [Concomitant]
  6. PREDNISONE TAB [Concomitant]
  7. TYLENOL [Concomitant]
  8. PULMICORT FLEXHALER [Suspect]
     Indication: ASTHMA
     Dosage: 180MCG 2 PUFFS THREE TIMES A DAY
     Route: 055
  9. FORADIL [Concomitant]
  10. SPIRIVA [Concomitant]
  11. VERAMYST NOSE SPRAY [Concomitant]
  12. ULTRASAN [Concomitant]
  13. LIDOCAINE PATCHES [Concomitant]
     Indication: BACK DISORDER

REACTIONS (19)
  - DRUG DOSE OMISSION [None]
  - PAIN [None]
  - OSTEOARTHRITIS [None]
  - INTERVERTEBRAL DISC PROTRUSION [None]
  - OFF LABEL USE [None]
  - DRUG HYPERSENSITIVITY [None]
  - SUICIDAL IDEATION [None]
  - GASTROOESOPHAGEAL REFLUX DISEASE [None]
  - MOBILITY DECREASED [None]
  - ASTHMA [None]
  - FATIGUE [None]
  - IMPAIRED DRIVING ABILITY [None]
  - GENERAL PHYSICAL CONDITION ABNORMAL [None]
  - GASTRIC DISORDER [None]
  - FOOD ALLERGY [None]
  - ACTIVITIES OF DAILY LIVING IMPAIRED [None]
  - MALAISE [None]
  - SPINAL COLUMN STENOSIS [None]
  - PNEUMONIA BACTERIAL [None]
